FAERS Safety Report 15736692 (Version 1)
Quarter: 2018Q4

REPORT INFORMATION
  Report Type: Report from Study
  Country: CH (occurrence: CH)
  Receive Date: 20181218
  Receipt Date: 20181218
  Transmission Date: 20190205
  Serious: Yes (Other)
  Sender: FDA-Public Use
  Company Number: PHHY2017CH169410

PATIENT
  Sex: Female
  Weight: 52 kg

DRUGS (9)
  1. CALCIMAGON [Concomitant]
     Active Substance: CALCIUM
     Indication: PRODUCT USED FOR UNKNOWN INDICATION
     Dosage: 500 MG, QD
     Route: 048
     Dates: start: 2010
  2. PREGABALIN SANDOZ [Suspect]
     Active Substance: PREGABALIN
     Indication: CARDIAC FAILURE CHRONIC
     Dosage: 150 MG, QD
     Route: 048
     Dates: start: 201712
  3. PREGABALIN SANDOZ [Suspect]
     Active Substance: PREGABALIN
     Indication: PAIN
  4. LATANOPROST. [Suspect]
     Active Substance: LATANOPROST
     Indication: INTRAOCULAR PRESSURE TEST ABNORMAL
     Dosage: 1.0 GTT, QD (DROPS, ONE DROP PER DAY)
     Route: 047
     Dates: start: 201809
  5. PANTOPRAZOL SANDOZ [Concomitant]
     Active Substance: PANTOPRAZOLE SODIUM
     Indication: PRODUCT USED FOR UNKNOWN INDICATION
     Dosage: 40 MG, QD
     Route: 048
     Dates: start: 2012
  6. ASPIRIN. [Concomitant]
     Active Substance: ASPIRIN
     Indication: PRODUCT USED FOR UNKNOWN INDICATION
     Dosage: 100 MG, QD
     Route: 048
     Dates: start: 2010
  7. MAGNEGON [Concomitant]
     Indication: PRODUCT USED FOR UNKNOWN INDICATION
     Dosage: 120 MG, QD
     Route: 048
     Dates: start: 2016
  8. PREGABALIN SANDOZ [Suspect]
     Active Substance: PREGABALIN
     Indication: NEURALGIA
  9. CRESTOR [Concomitant]
     Active Substance: ROSUVASTATIN CALCIUM
     Indication: PRODUCT USED FOR UNKNOWN INDICATION
     Dosage: 10 MG, QD
     Route: 048
     Dates: start: 2012

REACTIONS (15)
  - Chest pain [Recovering/Resolving]
  - Hand fracture [Recovered/Resolved]
  - Headache [Not Recovered/Not Resolved]
  - Pain in extremity [Not Recovered/Not Resolved]
  - Blood pressure diastolic decreased [Unknown]
  - Pain [Recovering/Resolving]
  - Intraocular pressure increased [Not Recovered/Not Resolved]
  - Atrial flutter [Unknown]
  - Nocturia [Unknown]
  - Osteoarthritis [Not Recovered/Not Resolved]
  - Weight decreased [Not Recovered/Not Resolved]
  - Dyspnoea exertional [Not Recovered/Not Resolved]
  - Atrial fibrillation [Unknown]
  - Fatigue [Recovered/Resolved]
  - Wheezing [Not Recovered/Not Resolved]

NARRATIVE: CASE EVENT DATE: 2016
